FAERS Safety Report 4690470-6 (Version None)
Quarter: 2005Q2

REPORT INFORMATION
  Report Type: 
  Country: None (occurrence: None)
  Receive Date: 20050614
  Receipt Date: 20050614
  Transmission Date: 20051028
  Serious: Yes (Life-Threatening, Hospitalization)
  Sender: FDA-Public Use
  Company Number: None

PATIENT
  Age: 60 Year
  Sex: Male
  Weight: 83.4619 kg

DRUGS (25)
  1. LISINOPRIL [Suspect]
     Indication: HYPERTENSION
     Dosage: 40MG  ONCE DAILY ORAL
     Route: 048
     Dates: start: 20050412, end: 20050501
  2. ASCORBIC ACID [Concomitant]
  3. ASPIRIN [Concomitant]
  4. CALCIUM CARBONATE [Concomitant]
  5. CLOPIDOGREL BISULFATE [Concomitant]
  6. BISULFATE [Concomitant]
  7. DOCUSATE NA [Concomitant]
  8. EPOETIN ALFA, RECOMB [Concomitant]
  9. FERROUS SO4 [Concomitant]
  10. FOLIC ACID [Concomitant]
  11. FUROSEMIDE [Concomitant]
  12. GATIFLOXACIN [Concomitant]
  13. GLIPIZIDE [Concomitant]
  14. LANSOPRAZOLE [Concomitant]
  15. SYNTHROID [Concomitant]
  16. METOCLOPRAMIDE HCL [Concomitant]
  17. METOPROLOL TARTRATE [Concomitant]
  18. NITROGLYCERIN [Concomitant]
  19. OXYCODONE 5MG/ACETAMINOPHEN [Concomitant]
  20. PYRIDOXINE HCL [Concomitant]
  21. SENNOSIDES [Concomitant]
  22. SIMVASTATIN [Concomitant]
  23. SORBITOL [Concomitant]
  24. SULFAMETHOXAZOLE AND TRIMETHOPRIM DOUBLE STRENGTH [Concomitant]
  25. TERAZOSIN HCL [Concomitant]

REACTIONS (8)
  - ASTHENIA [None]
  - BLOOD GLUCOSE INCREASED [None]
  - DEHYDRATION [None]
  - HYPERKALAEMIA [None]
  - HYPONATRAEMIA [None]
  - NAUSEA [None]
  - RENAL TUBULAR ACIDOSIS [None]
  - RETCHING [None]
